FAERS Safety Report 8537117-6 (Version None)
Quarter: 2012Q3

REPORT INFORMATION
  Report Type: 
  Country: None (occurrence: None)
  Receive Date: 20120725
  Receipt Date: 20120719
  Transmission Date: 20120928
  Serious: Yes (Death, Life-Threatening)
  Sender: FDA-Public Use
  Company Number: JP-PFIZER INC-2012025766

PATIENT
  Age: 64 Year
  Sex: Male

DRUGS (15)
  1. ATELEC [Concomitant]
     Dosage: 10 MG, 2X/DAY
     Route: 048
     Dates: end: 20111207
  2. PROCHLORPERAZINE [Concomitant]
     Indication: PROPHYLAXIS
     Dosage: 5 MG, 3X/DAY
     Route: 048
     Dates: end: 20111207
  3. HUMULIN R [Concomitant]
     Dosage: UNK
     Dates: end: 20111208
  4. POLARAMINE [Concomitant]
     Indication: PROPHYLAXIS
     Dosage: 5 MG, 1X/DAY
     Route: 042
  5. BETAMETHASONE [Concomitant]
     Indication: METASTATIC PAIN
     Dosage: 2 MG, 2X/DAY
     Route: 042
  6. NORVASC [Concomitant]
     Dosage: 5 MG, 1X/DAY
     Route: 048
     Dates: end: 20111207
  7. ACETAMINOPHEN [Concomitant]
     Indication: RENAL CELL CARCINOMA
     Dosage: 400 MG, 3X/DAY
     Route: 048
     Dates: end: 20111207
  8. PURSENNID [Concomitant]
     Indication: PROPHYLAXIS
     Dosage: 24 MG, 1X/DAY
     Route: 048
     Dates: end: 20111207
  9. MAGMITT [Concomitant]
     Indication: PROPHYLAXIS
     Dosage: 660 MG, 3X/DAY
     Route: 048
     Dates: end: 20111207
  10. TEMSIROLIMUS [Suspect]
     Indication: RENAL CELL CARCINOMA
     Dosage: 20 MG, WEEKLY
     Route: 042
     Dates: start: 20111101, end: 20111129
  11. OXYCONTIN [Concomitant]
     Indication: RENAL CELL CARCINOMA
     Dosage: UNK
     Route: 048
     Dates: end: 20111206
  12. VITAMEDIN INTRAVENOUS [Concomitant]
     Indication: PROPHYLAXIS
     Dosage: 1 DF, 1X/DAY
     Route: 042
     Dates: end: 20111208
  13. LANSOPRAZOLE [Concomitant]
     Indication: PROPHYLAXIS
     Dosage: 30 MG, 1X/DAY
     Route: 048
     Dates: end: 20111207
  14. NOVOLIN 70/30 [Concomitant]
     Dosage: UNK
     Dates: end: 20111205
  15. MORPHINE HYDROCHLORIDE [Concomitant]
     Indication: RENAL CELL CARCINOMA
     Dosage: UNK
     Route: 042
     Dates: start: 20111207, end: 20111210

REACTIONS (2)
  - PNEUMOCYSTIS JIROVECI PNEUMONIA [None]
  - ANAEMIA [None]
